FAERS Safety Report 7191375-1 (Version None)
Quarter: 2010Q4

REPORT INFORMATION
  Report Type: 
  Country: None (occurrence: None)
  Receive Date: 20101223
  Receipt Date: 20101220
  Transmission Date: 20110411
  Serious: Yes (Hospitalization)
  Sender: FDA-Public Use
  Company Number: CA-ROCHE-707609

PATIENT
  Sex: Female
  Weight: 85.1 kg

DRUGS (6)
  1. TOCILIZUMAB [Suspect]
     Dosage: LAST DOSE PRIOR TO SAE: 20 MAY 2010.PERMANENTLY DISCONTINUED.
     Route: 042
     Dates: start: 20100520, end: 20100617
  2. VOLTAREN [Concomitant]
     Dates: start: 20080814
  3. PRILOSEC [Concomitant]
     Dates: start: 20041102
  4. CALCIUM [Concomitant]
     Dates: start: 20070605
  5. VITAMINE D [Concomitant]
     Dates: start: 20070605
  6. AMITRIPTYLINE HCL [Concomitant]
     Dates: start: 20100225

REACTIONS (1)
  - BENIGN INTRACRANIAL HYPERTENSION [None]
